FAERS Safety Report 5215544-2 (Version None)
Quarter: 2007Q1

REPORT INFORMATION
  Report Type: 
  Country: None (occurrence: None)
  Receive Date: 20070117
  Receipt Date: 20070109
  Transmission Date: 20070707
  Serious: Yes (Death, Other)
  Sender: FDA-Public Use
  Company Number: 2006-06-0620

PATIENT
  Sex: Female

DRUGS (2)
  1. TEMODAL [Suspect]
     Indication: GLIOMA
     Dosage: PO
     Route: 048
  2. CO-TRIMAZOLE (BACTRIM 00086101) [Suspect]
     Indication: DRUG USE FOR UNKNOWN INDICATION
     Dosage: PO
     Route: 048

REACTIONS (2)
  - DEEP VEIN THROMBOSIS [None]
  - RASH GENERALISED [None]
